FAERS Safety Report 8406876-5 (Version None)
Quarter: 2012Q2

REPORT INFORMATION
  Report Type: 
  Country: None (occurrence: None)
  Receive Date: 20120604
  Receipt Date: 20120531
  Transmission Date: 20120825
  Serious: Yes (Hospitalization)
  Sender: FDA-Public Use
  Company Number: JP-EISAI INC-E2020-10865-SPO-JP

PATIENT
  Age: 84 Year
  Sex: Female

DRUGS (3)
  1. ACTOS [Concomitant]
     Indication: DIABETES MELLITUS
     Route: 048
  2. ARICEPT [Suspect]
     Route: 048
     Dates: start: 20120413, end: 20120420
  3. ZITHROMAX [Concomitant]
     Route: 048
     Dates: start: 20120416

REACTIONS (2)
  - RHABDOMYOLYSIS [None]
  - CARDIAC FAILURE [None]
